FAERS Safety Report 19976237 (Version 2)
Quarter: 2021Q4

REPORT INFORMATION
  Report Type: Spontaneous
  Country: SA (occurrence: SA)
  Receive Date: 20211020
  Receipt Date: 20211027
  Transmission Date: 20220303
  Serious: Yes (Other)
  Sender: FDA-Public Use
  Company Number: SA-MLMSERVICE-20211007-3153022-1

PATIENT
  Age: 53 Year
  Sex: Female

DRUGS (3)
  1. OXALIPLATIN [Suspect]
     Active Substance: OXALIPLATIN
     Indication: Colon cancer metastatic
     Dosage: HIPEC, 30 MINUTES
  2. OXALIPLATIN [Suspect]
     Active Substance: OXALIPLATIN
     Dosage: UNKNOWN DOSE, CYCLIC
  3. CAPECITABINE [Suspect]
     Active Substance: CAPECITABINE
     Indication: Colon cancer metastatic
     Dosage: UNKNOWN DOSE, CYCLIC

REACTIONS (3)
  - Schistosomiasis [Recovered/Resolved]
  - Infection reactivation [Recovered/Resolved]
  - Oral herpes [Recovered/Resolved]
